FAERS Safety Report 7500903-5 (Version None)
Quarter: 2011Q2

REPORT INFORMATION
  Report Type: 
  Country: None (occurrence: None)
  Receive Date: 20110524
  Receipt Date: 20110519
  Transmission Date: 20111010
  Serious: Yes (Life-Threatening, Hospitalization)
  Sender: FDA-Public Use
  Company Number: Z0009633A

PATIENT
  Sex: Male
  Weight: 104 kg

DRUGS (7)
  1. ACARD [Concomitant]
     Indication: PROPHYLAXIS
     Dosage: 75MG PER DAY
     Route: 048
     Dates: start: 20060101
  2. INDAPAMIDE [Concomitant]
     Indication: HYPERTENSION
     Dosage: 1.5MG PER DAY
     Route: 048
     Dates: start: 20061201
  3. VASILIP [Concomitant]
     Dosage: 20MG PER DAY
     Route: 048
     Dates: start: 20060101
  4. INSPRA [Concomitant]
     Indication: PROPHYLAXIS
     Dosage: 12.5MG PER DAY
     Route: 048
     Dates: start: 20100101
  5. BISOCARD [Concomitant]
     Indication: HYPERTENSION
     Dosage: 5MG PER DAY
     Route: 048
     Dates: start: 20060101
  6. GLUCOPHAGE [Concomitant]
     Indication: DIABETES MELLITUS
     Dosage: 750MG PER DAY
     Route: 048
     Dates: start: 20070101
  7. PAZOPANIB [Suspect]
     Indication: RENAL CELL CARCINOMA
     Dosage: 800MG PER DAY
     Route: 048
     Dates: start: 20110504

REACTIONS (2)
  - MYOCARDIAL INFARCTION [None]
  - ARRHYTHMIA [None]
